FAERS Safety Report 10221699 (Version 1)
Quarter: 2014Q2

REPORT INFORMATION
  Report Type: Spontaneous
  Country: US (occurrence: US)
  Receive Date: 20140606
  Receipt Date: 20140606
  Transmission Date: 20141212
  Serious: No
  Sender: FDA-Public Use
  Company Number: US-PFIZER INC-2014152903

PATIENT
  Sex: Female

DRUGS (1)
  1. LYRICA [Suspect]
     Dosage: UNK

REACTIONS (6)
  - Drug withdrawal syndrome [Unknown]
  - Myalgia [Unknown]
  - Pain [Unknown]
  - Cold sweat [Unknown]
  - Headache [Unknown]
  - Pain in extremity [Unknown]
